FAERS Safety Report 16847092 (Version 1)
Quarter: 2019Q3

REPORT INFORMATION
  Report Type: Spontaneous
  Country: US (occurrence: US)
  Receive Date: 20190924
  Receipt Date: 20190924
  Transmission Date: 20191005
  Serious: Yes (Life-Threatening, Hospitalization)
  Sender: FDA-Public Use
  Company Number: US-TEVA-2019-US-1112271

PATIENT
  Age: 63 Year
  Sex: Male

DRUGS (4)
  1. ACYCLOVIR. [Suspect]
     Active Substance: ACYCLOVIR
     Route: 042
  2. ACYCLOVIR. [Suspect]
     Active Substance: ACYCLOVIR
     Indication: HERPES ZOSTER
     Dosage: 4000 MILLIGRAM DAILY; ADMINISTERED 5 TIMES A DAY
     Route: 065
  3. CEFTRIAXONE. [Concomitant]
     Active Substance: CEFTRIAXONE
     Route: 065
  4. VANCOMYCIN [Concomitant]
     Active Substance: VANCOMYCIN
     Route: 065

REACTIONS (1)
  - Toxic encephalopathy [Recovered/Resolved]
